FAERS Safety Report 12707958 (Version 1)
Quarter: 2016Q3

REPORT INFORMATION
  Report Type: Spontaneous
  Country: US (occurrence: US)
  Receive Date: 20160901
  Receipt Date: 20160901
  Transmission Date: 20161109
  Serious: Yes (Other)
  Sender: FDA-Public Use
  Company Number: US-PFIZER INC-2016297900

PATIENT
  Age: 23 Year
  Sex: Female

DRUGS (2)
  1. EPINEPHRINE. [Suspect]
     Active Substance: EPINEPHRINE
     Indication: ANAPHYLAXIS TREATMENT
     Dosage: 2 MG, UNK (2 DOSES OF 1 MG (1:10,000))
     Route: 040
  2. EPINEPHRINE. [Suspect]
     Active Substance: EPINEPHRINE
     Indication: FOOD ALLERGY

REACTIONS (3)
  - Cardiogenic shock [Recovering/Resolving]
  - Accidental overdose [Unknown]
  - Left ventricular dysfunction [Recovering/Resolving]
